FAERS Safety Report 15844465 (Version 2)
Quarter: 2019Q3

REPORT INFORMATION
  Report Type: Report from Study
  Country: US (occurrence: US)
  Receive Date: 20190118
  Receipt Date: 20190927
  Transmission Date: 20191004
  Serious: Yes (Hospitalization)
  Sender: FDA-Public Use
  Company Number: US-ACTELION-A-NJ2018-171999

PATIENT
  Sex: Female
  Weight: 61.22 kg

DRUGS (8)
  1. VELETRI [Suspect]
     Active Substance: EPOPROSTENOL
     Dosage: 14 NG/KG, PER MIN
     Route: 042
  2. VELETRI [Suspect]
     Active Substance: EPOPROSTENOL
     Dosage: 32 NG/KG, UNK
     Route: 042
  3. VELETRI [Suspect]
     Active Substance: EPOPROSTENOL
     Dosage: 9 NG/KG, PER MIN
     Route: 042
     Dates: start: 2018
  4. ZOFRAN [Suspect]
     Active Substance: ONDANSETRON HYDROCHLORIDE
     Indication: NAUSEA
     Route: 065
  5. LETAIRIS [Concomitant]
     Active Substance: AMBRISENTAN
  6. VELETRI [Suspect]
     Active Substance: EPOPROSTENOL
     Indication: PULMONARY ARTERIAL HYPERTENSION
     Dosage: 36 NG/KG, PER MIN
     Route: 042
  7. VELETRI [Suspect]
     Active Substance: EPOPROSTENOL
     Dosage: 12 NG/KG, PER MIN
     Route: 042
  8. ADCIRCA [Concomitant]
     Active Substance: TADALAFIL

REACTIONS (19)
  - Catheter management [Unknown]
  - Oedema peripheral [Unknown]
  - Fatigue [Unknown]
  - Ear congestion [Unknown]
  - Pain in jaw [Unknown]
  - Catheter site swelling [Unknown]
  - Headache [Unknown]
  - Cardiac murmur [Unknown]
  - Pain [Unknown]
  - Rash pruritic [Unknown]
  - Vascular device infection [Unknown]
  - Flushing [Unknown]
  - Palpitations [Unknown]
  - Nausea [Unknown]
  - Dyspnoea exertional [Unknown]
  - Vomiting [Unknown]
  - Jugular vein distension [Unknown]
  - Hypotension [Unknown]
  - Diarrhoea [Unknown]

NARRATIVE: CASE EVENT DATE: 2018
